FAERS Safety Report 8309679-5 (Version None)
Quarter: 2012Q2

REPORT INFORMATION
  Report Type: 
  Country: None (occurrence: None)
  Receive Date: 20120423
  Receipt Date: 20120411
  Transmission Date: 20120825
  Serious: Yes (Hospitalization, Other)
  Sender: FDA-Public Use
  Company Number: 132652

PATIENT
  Age: 70 Year
  Sex: Female

DRUGS (1)
  1. DILTIAZEM HCL [Suspect]

REACTIONS (5)
  - MEDICATION ERROR [None]
  - OVERDOSE [None]
  - NEUROGENIC SHOCK [None]
  - LACTIC ACIDOSIS [None]
  - METABOLIC ACIDOSIS [None]
